FAERS Safety Report 13905678 (Version 3)
Quarter: 2017Q3

REPORT INFORMATION
  Report Type: Report from Study
  Country: FR (occurrence: FR)
  Receive Date: 20170825
  Receipt Date: 20170920
  Transmission Date: 20171127
  Serious: Yes (Other)
  Sender: FDA-Public Use
  Company Number: PHHY2017FR125425

PATIENT
  Sex: Female

DRUGS (7)
  1. CARBAMAZEPINE. [Concomitant]
     Active Substance: CARBAMAZEPINE
     Indication: FACIAL NEURALGIA
     Dosage: 200 MG, UNK
     Route: 048
     Dates: start: 20131126
  2. PARACETAMOL [Concomitant]
     Active Substance: ACETAMINOPHEN
     Indication: HEADACHE
     Dosage: 250 MG, UNK
     Route: 048
     Dates: start: 20100813
  3. LYRICA [Concomitant]
     Active Substance: PREGABALIN
     Indication: FACIAL NEURALGIA
     Dosage: 75 MG, UNK
     Route: 048
     Dates: start: 20160527
  4. DELURSAN [Concomitant]
     Active Substance: URSODIOL
     Indication: CHOLELITHIASIS
     Dosage: 250 MG, UNK
     Route: 048
     Dates: start: 20120127
  5. ALDACTAZINE [Concomitant]
     Active Substance: ALTHIAZIDE\SPIRONOLACTONE
     Indication: HYPERTENSION
     Dosage: UNK
     Route: 048
     Dates: start: 20150417
  6. LEVOTHYROX [Concomitant]
     Active Substance: LEVOTHYROXINE
     Indication: HYPOTHYROIDISM
     Dosage: 225 UG, UNK
     Route: 048
     Dates: start: 20150417
  7. SIGNIFOR LAR [Suspect]
     Active Substance: PASIREOTIDE
     Indication: ACROMEGALY
     Dosage: UNK
     Route: 065

REACTIONS (4)
  - Bradycardia [Recovered/Resolved]
  - Psoriasis [Not Recovered/Not Resolved]
  - Nausea [Recovered/Resolved]
  - Constipation [Not Recovered/Not Resolved]

NARRATIVE: CASE EVENT DATE: 20161027
